FAERS Safety Report 10868709 (Version 1)
Quarter: 2015Q1

REPORT INFORMATION
  Report Type: Report from Study
  Country: AU (occurrence: AU)
  Receive Date: 20150225
  Receipt Date: 20150225
  Transmission Date: 20150721
  Serious: Yes (Hospitalization)
  Sender: FDA-Public Use
  Company Number: AU-SA-2014SA029421

PATIENT
  Age: 66 Year
  Sex: Male
  Weight: 108 kg

DRUGS (7)
  1. METFORMIN [Concomitant]
     Active Substance: METFORMIN HYDROCHLORIDE
  2. DIAMICRON [Concomitant]
     Active Substance: GLICLAZIDE
  3. LANTUS [Suspect]
     Active Substance: INSULIN GLARGINE
     Indication: TYPE 2 DIABETES MELLITUS
     Route: 058
     Dates: start: 20090507
  4. LANTUS [Interacting]
     Active Substance: INSULIN GLARGINE
     Indication: TYPE 2 DIABETES MELLITUS
     Route: 058
  5. ASPIRIN. [Interacting]
     Active Substance: ASPIRIN
     Indication: ATRIOVENTRICULAR BLOCK
     Route: 065
     Dates: start: 20150204
  6. LANTUS [Interacting]
     Active Substance: INSULIN GLARGINE
     Indication: TYPE 2 DIABETES MELLITUS
     Route: 058
  7. NOVORAPID [Concomitant]
     Active Substance: INSULIN ASPART
     Indication: TYPE 2 DIABETES MELLITUS
     Dosage: 20IU/D (EVENING)

REACTIONS (4)
  - Blood glucose increased [Not Recovered/Not Resolved]
  - Weight increased [Recovering/Resolving]
  - Atrioventricular block [Not Recovered/Not Resolved]
  - Drug interaction [Not Recovered/Not Resolved]
